FAERS Safety Report 4808305-7 (Version None)
Quarter: 2005Q4

REPORT INFORMATION
  Report Type: 
  Country: None (occurrence: None)
  Receive Date: 20051021
  Receipt Date: 20050607
  Transmission Date: 20060501
  Serious: No
  Sender: FDA-Public Use
  Company Number: JP_050606747

PATIENT
  Age: 65 Year
  Sex: Female

DRUGS (4)
  1. ZYPREXA [Suspect]
     Indication: SCHIZOPHRENIA
     Dosage: 5 MG DAY
  2. DOGMATYL(SULPIRIDE) [Concomitant]
  3. PAXIL [Concomitant]
  4. MEILAX(ETHYL LOFLAZEPATE) [Concomitant]

REACTIONS (1)
  - DEEP VEIN THROMBOSIS [None]
